FAERS Safety Report 9645384 (Version 2)
Quarter: 2013Q4

REPORT INFORMATION
  Report Type: Spontaneous
  Country: US (occurrence: US)
  Receive Date: 20131025
  Receipt Date: 20131111
  Transmission Date: 20140711
  Serious: Yes (Other)
  Sender: FDA-Public Use
  Company Number: US-PFIZER INC-2013302403

PATIENT
  Sex: 0

DRUGS (12)
  1. IBUPROFEN [Suspect]
     Indication: MIGRAINE
     Dosage: UNK
     Route: 064
  2. TYLENOL [Suspect]
     Indication: MIGRAINE
     Route: 064
  3. TYLENOL [Suspect]
     Indication: PAIN
  4. DARVOCET [Suspect]
     Indication: HEADACHE
     Route: 064
  5. DARVOCET [Suspect]
     Indication: PAIN
  6. EXCEDRIN MIGRAINE [Suspect]
     Indication: PAIN
     Dosage: UNK
     Route: 064
     Dates: start: 2001
  7. EXCEDRIN MIGRAINE [Suspect]
     Indication: MIGRAINE
  8. EXCEDRIN EXTRA STRENGTH [Suspect]
     Indication: HEADACHE
     Dosage: 2 CAPLETES AS NEEDED
     Route: 064
  9. EXCEDRIN EXTRA STRENGTH [Suspect]
     Indication: BACK PAIN
  10. EXCEDRIN EXTRA STRENGTH [Suspect]
     Indication: MYALGIA
  11. INSULIN [Suspect]
     Indication: DIABETES MELLITUS
     Dosage: UNK
     Route: 064
  12. INSULIN [Suspect]
     Indication: DIABETES MELLITUS
     Dosage: UNK
     Route: 064
     Dates: start: 1997

REACTIONS (2)
  - Maternal exposure timing unspecified [Unknown]
  - Premature baby [Unknown]
